FAERS Safety Report 6016619-0 (Version None)
Quarter: 2008Q4

REPORT INFORMATION
  Report Type: 
  Country: None (occurrence: None)
  Receive Date: 20081222
  Receipt Date: 20081215
  Transmission Date: 20090506
  Serious: Yes (Other)
  Sender: FDA-Public Use
  Company Number: PHBS2008BR06677

PATIENT
  Age: 29 Year
  Sex: Female

DRUGS (3)
  1. CYCLOSPORINE [Suspect]
     Indication: AUTOIMMUNE HEPATITIS
  2. URSODIOL [Suspect]
     Indication: AUTOIMMUNE HEPATITIS
     Dosage: UNK
  3. AZATHIOPRINE [Suspect]
     Indication: AUTOIMMUNE HEPATITIS

REACTIONS (2)
  - ABORTION [None]
  - DRUG EXPOSURE DURING PREGNANCY [None]
